FAERS Safety Report 16219130 (Version 1)
Quarter: 2019Q2

REPORT INFORMATION
  Report Type: Report from Study
  Country: US (occurrence: US)
  Receive Date: 20190419
  Receipt Date: 20190419
  Transmission Date: 20190711
  Serious: Yes (Hospitalization, Other)
  Sender: FDA-Public Use
  Company Number: US-ASTRAZENECA-2018SF37455

PATIENT
  Age: 73 Year
  Sex: Female
  Weight: 52.6 kg

DRUGS (3)
  1. TUDORZA PRESSAIR [Suspect]
     Active Substance: ACLIDINIUM BROMIDE
     Dosage: 400 MCG ONE PUFF TWICE DAILY
     Route: 055
  2. BUDESONIDE. [Suspect]
     Active Substance: BUDESONIDE
     Dosage: 0.5MG UNKNOWN
     Route: 055
  3. SYMBICORT [Suspect]
     Active Substance: BUDESONIDE\FORMOTEROL FUMARATE DIHYDRATE
     Indication: DYSPNOEA
     Dosage: 160/4.5 MCG 2 PUFFS TWICE DAILY
     Route: 055

REACTIONS (15)
  - Chronic obstructive pulmonary disease [Unknown]
  - Intentional device misuse [Unknown]
  - Loss of personal independence in daily activities [Unknown]
  - Foot fracture [Recovered/Resolved]
  - Diabetes mellitus [Not Recovered/Not Resolved]
  - Device defective [Unknown]
  - Chronic lymphocytic leukaemia [Unknown]
  - Memory impairment [Unknown]
  - Dyspnoea [Unknown]
  - Condition aggravated [Unknown]
  - Product use in unapproved indication [Unknown]
  - Weight decreased [Unknown]
  - Product dose omission [Not Recovered/Not Resolved]
  - Off label use [Unknown]
  - Device issue [Unknown]
